FAERS Safety Report 24986371 (Version 3)
Quarter: 2025Q1

REPORT INFORMATION
  Report Type: Report from Study
  Country: KR (occurrence: KR)
  Receive Date: 20250219
  Receipt Date: 20250228
  Transmission Date: 20250409
  Serious: Yes (Other)
  Sender: ABBVIE
  Company Number: KR-ABBVIE-5746478

PATIENT
  Age: 76 Year
  Sex: Male
  Weight: 50 kg

DRUGS (25)
  1. VENCLEXTA [Suspect]
     Active Substance: VENETOCLAX
     Indication: Acute myeloid leukaemia
     Route: 048
     Dates: start: 20240311, end: 20240321
  2. VENCLEXTA [Suspect]
     Active Substance: VENETOCLAX
     Indication: Acute myeloid leukaemia
     Route: 048
     Dates: start: 20240128, end: 20240128
  3. VENCLEXTA [Suspect]
     Active Substance: VENETOCLAX
     Indication: Acute myeloid leukaemia
     Route: 048
     Dates: start: 20240127, end: 20240127
  4. VENCLEXTA [Suspect]
     Active Substance: VENETOCLAX
     Indication: Acute myeloid leukaemia
     Route: 048
     Dates: start: 20240129, end: 20240209
  5. ALLOPURINOL [Concomitant]
     Active Substance: ALLOPURINOL
     Indication: Prophylaxis
     Dosage: 100 MG
     Route: 048
     Dates: start: 20240126
  6. VFEND [Concomitant]
     Active Substance: VORICONAZOLE
     Indication: Pneumonia fungal
     Dosage: PER ORAL
     Route: 048
     Dates: start: 20240311, end: 20240322
  7. Hanlim vasopressin [Concomitant]
     Indication: Intestinal sepsis
     Route: 042
     Dates: start: 20240322, end: 20240323
  8. MAXIPIME [Concomitant]
     Active Substance: CEFEPIME HYDROCHLORIDE
     Indication: Pneumonia fungal
     Route: 042
     Dates: start: 20240129, end: 20240130
  9. MAXIPIME [Concomitant]
     Active Substance: CEFEPIME HYDROCHLORIDE
     Indication: Pneumonia fungal
     Route: 042
     Dates: start: 20240304, end: 20240315
  10. DACOGEN [Concomitant]
     Active Substance: DECITABINE
     Indication: Acute myeloid leukaemia
     Route: 042
     Dates: start: 20240311, end: 20240315
  11. DACOGEN [Concomitant]
     Active Substance: DECITABINE
     Indication: Acute myeloid leukaemia
     Route: 042
     Dates: start: 20240127, end: 20240131
  12. Iv Globulin Sn [Concomitant]
     Indication: Colitis
     Dosage: INJ 10% 200ML
     Route: 042
     Dates: start: 20240322, end: 20240322
  13. Azitops [Concomitant]
     Indication: Pneumonia fungal
     Dosage: 500MG
     Route: 042
     Dates: start: 20240305, end: 20240309
  14. Solondo [Concomitant]
     Indication: Pneumonia fungal
     Route: 048
     Dates: start: 20240309, end: 20240309
  15. Solondo [Concomitant]
     Indication: Pneumonia fungal
     Route: 048
     Dates: start: 20240310, end: 20240315
  16. Dong a suprax [Concomitant]
     Indication: Infection prophylaxis
     Dosage: 100 MG
     Route: 048
     Dates: start: 20240315, end: 20240322
  17. Dong a suprax [Concomitant]
     Indication: Infection prophylaxis
     Dosage: 100MG
     Route: 048
     Dates: start: 20240131, end: 20240226
  18. Hemosirox [Concomitant]
     Indication: Haemosiderosis
     Dosage: 500MG
     Route: 048
     Dates: start: 20240213, end: 20240221
  19. LEVOFLOXACIN [Concomitant]
     Active Substance: LEVOFLOXACIN
     Indication: Infection prophylaxis
     Dosage: 500 MG
     Route: 048
     Dates: start: 20240226, end: 20240304
  20. Yuhan meropen [Concomitant]
     Indication: Colitis
     Dosage: 500 MG
     Route: 042
     Dates: start: 20240322, end: 20240323
  21. Teicocin [Concomitant]
     Indication: Colitis
     Dosage: 400 MG
     Route: 042
     Dates: start: 20240322, end: 20240323
  22. METHYLPREDNISOLONE [Concomitant]
     Active Substance: METHYLPREDNISOLONE
     Indication: Pneumonia fungal
     Dosage: 125MG
     Route: 042
     Dates: start: 20240308, end: 20240308
  23. METHYLPREDNISOLONE [Concomitant]
     Active Substance: METHYLPREDNISOLONE
     Indication: Pneumonia fungal
     Dosage: 125MG
     Route: 042
     Dates: start: 20240305, end: 20240307
  24. Q phrine [Concomitant]
     Indication: Colitis
     Route: 042
     Dates: start: 20240322, end: 20240323
  25. VFEND [Concomitant]
     Active Substance: VORICONAZOLE
     Indication: Pneumonia fungal
     Dosage: 200 MG
     Route: 042
     Dates: start: 20240305, end: 20240310

REACTIONS (3)
  - Small intestinal obstruction [Not Recovered/Not Resolved]
  - Vomiting [Recovered/Resolved]
  - Ileus [Not Recovered/Not Resolved]

NARRATIVE: CASE EVENT DATE: 20240322
